FAERS Safety Report 4477479-2 (Version None)
Quarter: 2004Q4

REPORT INFORMATION
  Report Type: 
  Country: None (occurrence: None)
  Receive Date: 20041006
  Receipt Date: 20040920
  Transmission Date: 20050328
  Serious: Yes (Death)
  Sender: FDA-Public Use
  Company Number: 239425

PATIENT
  Sex: 0

DRUGS (1)
  1. NOVOSEVEN [Suspect]
     Indication: PULMONARY ALVEOLAR HAEMORRHAGE

REACTIONS (2)
  - CONCOMITANT DISEASE PROGRESSION [None]
  - PULMONARY ALVEOLAR HAEMORRHAGE [None]
